FAERS Safety Report 11984052 (Version 1)
Quarter: 2016Q1

REPORT INFORMATION
  Report Type: Report from Study
  Country: AE (occurrence: AE)
  Receive Date: 20160201
  Receipt Date: 20160201
  Transmission Date: 20160526
  Serious: Yes (Other)
  Sender: FDA-Public Use
  Company Number: AE-KOWA-15EU002097

PATIENT

DRUGS (1)
  1. PITAVASTATIN [Suspect]
     Active Substance: PITAVASTATIN
     Indication: DYSLIPIDAEMIA
     Dosage: 4 MG, UNK
     Route: 048
     Dates: start: 20140516, end: 20140730

REACTIONS (2)
  - Blood triglycerides increased [Unknown]
  - Drug ineffective [Unknown]
